FAERS Safety Report 17799524 (Version 1)
Quarter: 2020Q2

REPORT INFORMATION
  Report Type: Spontaneous
  Country: US (occurrence: US)
  Receive Date: 20200518
  Receipt Date: 20200518
  Transmission Date: 20200714
  Serious: No
  Sender: FDA-Public Use
  Company Number: US-THERAPEUTICSMD-2020TMD01983

PATIENT
  Sex: Female

DRUGS (2)
  1. BIJUVA [Suspect]
     Active Substance: ESTRADIOL\PROGESTERONE
     Indication: HOT FLUSH
     Dosage: UNK
     Dates: start: 2019, end: 2019
  2. BIJUVA [Suspect]
     Active Substance: ESTRADIOL\PROGESTERONE
     Dosage: UNK
     Dates: start: 202004

REACTIONS (3)
  - Therapeutic product effect incomplete [Recovered/Resolved]
  - Drug ineffective [Not Recovered/Not Resolved]
  - Hot flush [Not Recovered/Not Resolved]

NARRATIVE: CASE EVENT DATE: 2019
